FAERS Safety Report 4450803-2 (Version None)
Quarter: 2004Q3

REPORT INFORMATION
  Report Type: 
  Country: None (occurrence: None)
  Receive Date: 20040913
  Receipt Date: 20040517
  Transmission Date: 20050211
  Serious: No
  Sender: FDA-Public Use
  Company Number: 2004-BP-03852BP(0)

PATIENT
  Age: 75 Year
  Sex: Female

DRUGS (11)
  1. SPIRIVA [Suspect]
     Indication: CHRONIC OBSTRUCTIVE AIRWAYS DISEASE
     Dosage: 18 MCG (18 MCG), IH
     Dates: start: 20040512
  2. FLOVENT [Concomitant]
  3. THEO-DUR [Concomitant]
  4. ALBUTEROL [Concomitant]
  5. DIAZEPAM [Concomitant]
  6. VICADIN [Concomitant]
  7. SOMA [Concomitant]
  8. REMACAD [Concomitant]
  9. PREDNISONE [Concomitant]
  10. HYDROCHLOROTHIAZIDE [Concomitant]
  11. SEREVENT [Concomitant]

REACTIONS (3)
  - MYALGIA [None]
  - NASAL DISCOMFORT [None]
  - TREMOR [None]
